FAERS Safety Report 9122109 (Version 1)
Quarter: 2013Q1

REPORT INFORMATION
  Report Type: Spontaneous
  Country: US (occurrence: None)
  Receive Date: 20130125
  Receipt Date: 20130125
  Transmission Date: 20140127
  Serious: No
  Sender: FDA-Public Use
  Company Number: 2012US-004440

PATIENT
  Sex: Male
  Weight: 146.5 kg

DRUGS (19)
  1. OMONTYS (PEGINESATIDE) SOLUTION FOR INJECTION [Suspect]
     Indication: NEPHROGENIC ANAEMIA
     Dates: start: 20120924, end: 20120924
  2. AMBIEN (ZOLPIDEM TARTRATE) [Concomitant]
  3. ASPIRIN (ACETYLSALICYLIC ACID) [Concomitant]
  4. BENADRYL (DIPHENHYDRAMINE HYDROCHLORIDE) [Concomitant]
  5. DIALYVITE (ASCORBIC ACID, BIOTIN, FOLIC ACID, MECOBALAMIN, NICOTINIC ACID, PANTOTHENIC ACID, PYRIDOXINE HYDROCHLORIDE, RIBOFLAVIN, THIAMINE) [Concomitant]
  6. DOCUSATE SODIUM (DOCUSATE SODIUM) [Concomitant]
  7. FOLIC ACID (FOLIC ACID) [Concomitant]
  8. GABAPENTIN (GABAPENTIN) [Concomitant]
  9. HECTOROL (DOXERCALCIFEROL) [Concomitant]
  10. METOPROLOL (METOPROLOL) [Concomitant]
  11. NORMAL SALINE (SODIUIM CHLORIDE) [Concomitant]
  12. OXYGEN (OXYGEN) [Concomitant]
  13. RANITIDINE (RANITIDINE) [Concomitant]
  14. SENSIPAR (CINACALCET HYDROCHLORIDE) [Concomitant]
  15. SIMVASTATIN  (SIMVASTATIN) [Concomitant]
  16. TYLENOL (PARACETAMOL) [Concomitant]
  17. VENOFER [Concomitant]
  18. DILAUDID (HYDROMORPHONE HYDROCHLORIDE) [Concomitant]
  19. PHOSLO (CALCIUM ACETATE) [Concomitant]

REACTIONS (3)
  - Pain in extremity [None]
  - Chest pain [None]
  - Asthenia [None]
